FAERS Safety Report 14439996 (Version 3)
Quarter: 2020Q1

REPORT INFORMATION
  Report Type: Spontaneous
  Country: US (occurrence: US)
  Receive Date: 20180125
  Receipt Date: 20200128
  Transmission Date: 20200409
  Serious: Yes (Hospitalization, Other)
  Sender: FDA-Public Use
  Company Number: US-NOVOPROD-582159

PATIENT
  Age: 65 Year
  Sex: Male
  Weight: 93.88 kg

DRUGS (5)
  1. NOVOLOG [Suspect]
     Active Substance: INSULIN ASPART
     Indication: TYPE 2 DIABETES MELLITUS
     Dosage: SLIDING SCALE
     Route: 058
  2. NOVOLOG [Suspect]
     Active Substance: INSULIN ASPART
     Indication: TYPE 2 DIABETES MELLITUS
     Dosage: UNK
     Route: 058
  3. LANTUS [Suspect]
     Active Substance: INSULIN GLARGINE
     Indication: TYPE 2 DIABETES MELLITUS
     Dosage: UNK
     Route: 058
  4. METOPROLOL. [Suspect]
     Active Substance: METOPROLOL
     Indication: PRODUCT USED FOR UNKNOWN INDICATION
     Dosage: UNK
     Route: 065
     Dates: start: 2013
  5. INDOMETHACIN [INDOMETACIN] [Suspect]
     Active Substance: INDOMETHACIN
     Indication: PRODUCT USED FOR UNKNOWN INDICATION
     Dosage: UNK
     Route: 065
     Dates: start: 2013

REACTIONS (10)
  - Deep vein thrombosis [Recovered/Resolved]
  - Vascular compression [Recovered/Resolved]
  - Nephrolithiasis [Unknown]
  - Abdominal neoplasm [Recovered/Resolved]
  - Neoplasm [Recovered/Resolved]
  - Adverse reaction [Recovered/Resolved]
  - Neuropathy peripheral [Not Recovered/Not Resolved]
  - Acne [Unknown]
  - Blood glucose increased [Unknown]
  - Testis cancer [Recovering/Resolving]

NARRATIVE: CASE EVENT DATE: 2010
